FAERS Safety Report 16998164 (Version 1)
Quarter: 2019Q4

REPORT INFORMATION
  Report Type: Spontaneous
  Country: US (occurrence: US)
  Receive Date: 20191106
  Receipt Date: 20191106
  Transmission Date: 20200122
  Serious: Yes (Hospitalization)
  Sender: FDA-Public Use
  Company Number: US-TEVA-2019-US-1132286

PATIENT
  Age: 36 Year
  Sex: Female

DRUGS (4)
  1. MAGNESIUM OXIDE. [Suspect]
     Active Substance: MAGNESIUM OXIDE
     Indication: PAIN
     Dosage: 600 MILLIGRAM DAILY;
     Route: 065
  2. LITHIUM. [Concomitant]
     Active Substance: LITHIUM
     Indication: MANIA
     Dosage: EXTENDED RELEASE
     Route: 065
  3. OLANZAPINE. [Suspect]
     Active Substance: OLANZAPINE
     Indication: MANIA
     Dosage: AT BED TIME
     Route: 065
  4. DELSYM [Suspect]
     Active Substance: DEXTROMETHORPHAN
     Indication: PAIN
     Dosage: COUGH SYRUP
     Route: 065

REACTIONS (5)
  - Intentional product misuse [Recovering/Resolving]
  - Hypothyroidism [Recovered/Resolved]
  - Self-medication [Unknown]
  - Blood pressure increased [Unknown]
  - Mania [Recovering/Resolving]
